FAERS Safety Report 9398514 (Version 1)
Quarter: 2013Q3

REPORT INFORMATION
  Report Type: Report from Study
  Country: DE (occurrence: DE)
  Receive Date: 20130712
  Receipt Date: 20130712
  Transmission Date: 20140515
  Serious: Yes (Hospitalization)
  Sender: FDA-Public Use
  Company Number: DE-TEVA-417188ISR

PATIENT
  Age: 70 Year
  Sex: Female

DRUGS (5)
  1. PACLITAXEL [Suspect]
     Indication: OVARIAN CANCER
     Dosage: LAST DOSE TAKEN PRIOR TO SAE ON 31/DEC/2012 (301 MG)
     Route: 042
     Dates: start: 20121029, end: 20130101
  2. CARBOPLATIN [Suspect]
     Indication: OVARIAN CANCER
     Dosage: LAST DOSE TAKEN PRIOR TO SAE ON 31/DEC/2012 (522.3 MG)
     Route: 042
     Dates: start: 20121029, end: 20130101
  3. BEVACIZUMAB [Suspect]
     Indication: OVARIAN CANCER
     Dosage: LAST DOSE TAKEN PRIOR TO SAE ON 31/DEC/2012 (15 MG/KG)
     Route: 042
     Dates: start: 20121028, end: 20130101
  4. LENOGRASTIM [Concomitant]
     Dosage: 34000 IE, MOST RECENT DOSE PRIOR TO SAE ON 08/JAN/2013
     Dates: start: 20130103
  5. METOPROLOL [Concomitant]

REACTIONS (2)
  - Pancytopenia [Recovered/Resolved]
  - Cardiomyopathy [Recovered/Resolved]
